FAERS Safety Report 6851838-2 (Version None)
Quarter: 2010Q3

REPORT INFORMATION
  Report Type: 
  Country: None (occurrence: None)
  Receive Date: 20100717
  Receipt Date: 20071031
  Transmission Date: 20110219
  Serious: No
  Sender: FDA-Public Use
  Company Number: US-PFIZER INC-2007092956

PATIENT
  Sex: Female
  Weight: 74.545 kg

DRUGS (7)
  1. CHANTIX [Suspect]
     Indication: SMOKING CESSATION THERAPY
     Dates: start: 20071001
  2. ALL OTHER THERAPEUTIC PRODUCTS [Concomitant]
  3. THYROID TAB [Concomitant]
  4. PREMARIN [Concomitant]
  5. CHOLESTEROL- AND TRIGLYCERIDE REDUCERS [Concomitant]
  6. PRILOSEC [Concomitant]
  7. LIBRAX [Concomitant]
     Indication: ABDOMINAL DISCOMFORT

REACTIONS (3)
  - DRUG WITHDRAWAL SYNDROME [None]
  - FEELING ABNORMAL [None]
  - HEADACHE [None]
